FAERS Safety Report 20356747 (Version 1)
Quarter: 2022Q1

REPORT INFORMATION
  Report Type: Spontaneous
  Country: GB (occurrence: GB)
  Receive Date: 20220120
  Receipt Date: 20220120
  Transmission Date: 20220423
  Serious: Yes (Life-Threatening)
  Sender: FDA-Public Use
  Company Number: GB-AstraZeneca-2021A875406

PATIENT
  Age: 57 Year
  Sex: Female
  Weight: 46 kg

DRUGS (2)
  1. OMEPRAZOLE [Suspect]
     Active Substance: OMEPRAZOLE
     Indication: Ill-defined disorder
     Dosage: 20MG
     Route: 048
  2. SPIRONOLACTONE [Concomitant]
     Active Substance: SPIRONOLACTONE
     Indication: Ill-defined disorder

REACTIONS (1)
  - Hyponatraemia [Recovering/Resolving]
